FAERS Safety Report 5020402-2 (Version None)
Quarter: 2006Q2

REPORT INFORMATION
  Report Type: 
  Country: None (occurrence: None)
  Receive Date: 20060602
  Receipt Date: 20060517
  Transmission Date: 20061013
  Serious: Yes (Hospitalization)
  Sender: FDA-Public Use
  Company Number: DSA_28211_2006

PATIENT
  Sex: Female

DRUGS (4)
  1. LORAZEPAM [Suspect]
     Dosage: DF Q DAY TRAN-P
     Dates: start: 20060215
  2. PAXIL [Suspect]
     Dosage: 10 MG Q DAY TRAN-P
     Dates: start: 20060311, end: 20060312
  3. PAXIL [Suspect]
     Dosage: 20 MG Q DAY TRAN-P
     Route: 064
     Dates: start: 20060313
  4. BENZALIN [Suspect]
     Dosage: 5 MG Q DAY TRAN-P
     Route: 064
     Dates: start: 20060311

REACTIONS (6)
  - CAESAREAN SECTION [None]
  - DRUG EXPOSURE DURING PREGNANCY [None]
  - FEEDING DISORDER NEONATAL [None]
  - HYPOKINESIA NEONATAL [None]
  - NEONATAL DISORDER [None]
  - SOMNOLENCE NEONATAL [None]
